FAERS Safety Report 21119008 (Version 2)
Quarter: 2022Q3

REPORT INFORMATION
  Report Type: Spontaneous
  Country: JP (occurrence: None)
  Receive Date: 20220722
  Receipt Date: 20220801
  Transmission Date: 20221027
  Serious: No
  Sender: FDA-Public Use
  Company Number: JP-Orion Corporation ORION PHARMA-ENTC2022-0149

PATIENT
  Age: 79 Year
  Sex: Female

DRUGS (5)
  1. STALEVO [Suspect]
     Active Substance: CARBIDOPA\ENTACAPONE\LEVODOPA
     Indication: Parkinson^s disease
     Dosage: 1 DF: LEVODOPA 100 MG, CARBIDOPA HYDRATE 10.8 MG, ENTACAPONE 100 MG (ON AWAKENING).
     Route: 048
  2. STALEVO [Suspect]
     Active Substance: CARBIDOPA\ENTACAPONE\LEVODOPA
     Dosage: 1 DF: LEVODOPA 100 MG, CARBIDOPA HYDRATE 10.8 MG, ENTACAPONE 100 MG (AT 10:00).
     Route: 048
  3. STALEVO [Suspect]
     Active Substance: CARBIDOPA\ENTACAPONE\LEVODOPA
     Dosage: 1 DF: LEVODOPA 100 MG, CARBIDOPA HYDRATE 10.8 MG, ENTACAPONE 100 MG (AT 14:00).
     Route: 048
  4. STALEVO [Suspect]
     Active Substance: CARBIDOPA\ENTACAPONE\LEVODOPA
     Dosage: 1 DF: LEVODOPA 100 MG, CARBIDOPA HYDRATE 10.8 MG, ENTACAPONE 100 MG (AT 17:00).
     Route: 048
  5. STALEVO [Suspect]
     Active Substance: CARBIDOPA\ENTACAPONE\LEVODOPA
     Dosage: 1 DF: LEVODOPA 100 MG, CARBIDOPA HYDRATE 10.8 MG, ENTACAPONE 100 MG (BEFORE BEDTIME).
     Route: 048

REACTIONS (1)
  - Wrong technique in product usage process [Unknown]
